FAERS Safety Report 23923074 (Version 2)
Quarter: 2024Q2

REPORT INFORMATION
  Report Type: Report from Study
  Country: JP (occurrence: JP)
  Receive Date: 20240531
  Receipt Date: 20240630
  Transmission Date: 20240716
  Serious: Yes (Other)
  Sender: FDA-Public Use
  Company Number: JP-UCBSA-2024027116

PATIENT
  Age: 81 Year
  Sex: Female

DRUGS (12)
  1. LACOSAMIDE [Suspect]
     Active Substance: LACOSAMIDE
     Indication: Dementia
     Dosage: 50 MILLIGRAM, 2X/DAY (BID)
     Route: 042
     Dates: start: 20240322, end: 20240323
  2. LACOSAMIDE [Suspect]
     Active Substance: LACOSAMIDE
     Indication: Epilepsy
  3. LACOSAMIDE [Suspect]
     Active Substance: LACOSAMIDE
     Indication: Off label use
  4. LACOSAMIDE [Suspect]
     Active Substance: LACOSAMIDE
     Indication: Dementia
     Dosage: 50 MILLIGRAM, 2X/DAY (BID)
     Route: 048
     Dates: start: 20240324, end: 20240512
  5. LACOSAMIDE [Suspect]
     Active Substance: LACOSAMIDE
     Indication: Epilepsy
     Dosage: 50 MILLIGRAM DAILY
     Route: 048
     Dates: start: 20240513, end: 20240518
  6. LACOSAMIDE [Suspect]
     Active Substance: LACOSAMIDE
     Indication: Off label use
  7. DIAZEPAM [Concomitant]
     Active Substance: DIAZEPAM
     Indication: Dementia
     Dosage: 5 MILLIGRAM DAILY
     Route: 042
     Dates: start: 20240322, end: 20240322
  8. DIAZEPAM [Concomitant]
     Active Substance: DIAZEPAM
     Indication: Epilepsy
  9. DIAZEPAM [Concomitant]
     Active Substance: DIAZEPAM
     Indication: Seizure
  10. ASPIRIN [Concomitant]
     Active Substance: ASPIRIN
     Indication: Product used for unknown indication
     Dosage: UNK
     Route: 048
  11. SENNOSIDES A AND B [Concomitant]
     Active Substance: SENNOSIDES A AND B
     Indication: Product used for unknown indication
     Dosage: UNK
  12. LOSARTAN POTASSIUM [Concomitant]
     Active Substance: LOSARTAN POTASSIUM
     Indication: Product used for unknown indication

REACTIONS (3)
  - Depressed level of consciousness [Unknown]
  - Off label use [Unknown]
  - Drug effective for unapproved indication [Unknown]
